FAERS Safety Report 18256946 (Version 1)
Quarter: 2020Q3

REPORT INFORMATION
  Report Type: Spontaneous
  Country: RO (occurrence: RO)
  Receive Date: 20200911
  Receipt Date: 20200911
  Transmission Date: 20201103
  Serious: Yes (Death, Hospitalization, Other)
  Sender: FDA-Public Use
  Company Number: RO-MYLANLABS-2020M1076954

PATIENT
  Age: 68 Year
  Sex: Female

DRUGS (2)
  1. EPIRUBICIN [Suspect]
     Active Substance: EPIRUBICIN
     Indication: BREAST CANCER STAGE III
     Dosage: 100 M/M2
  2. CYCLOPHOSPHAMIDE. [Suspect]
     Active Substance: CYCLOPHOSPHAMIDE
     Indication: BREAST CANCER STAGE III
     Dosage: 600 MILLIGRAM/SQ. METER

REACTIONS (18)
  - Septic shock [Fatal]
  - Metabolic acidosis [Fatal]
  - Pancreatic enlargement [Fatal]
  - Peripancreatic fluid collection [Fatal]
  - Pyrexia [Fatal]
  - Nausea [Fatal]
  - Chills [Fatal]
  - Oedematous pancreatitis [Fatal]
  - Hypokalaemia [Fatal]
  - Haemodynamic instability [Fatal]
  - Acute kidney injury [Fatal]
  - Pancreatic necrosis [Fatal]
  - Abdominal pain [Fatal]
  - Pancreatitis acute [Fatal]
  - Pleural effusion [Fatal]
  - Diarrhoea [Fatal]
  - Vomiting [Fatal]
  - Electrolyte imbalance [Fatal]
